FAERS Safety Report 7714796-4 (Version None)
Quarter: 2011Q3

REPORT INFORMATION
  Report Type: 
  Country: None (occurrence: None)
  Receive Date: 20110829
  Receipt Date: 20110818
  Transmission Date: 20111222
  Serious: Yes (Other)
  Sender: FDA-Public Use
  Company Number: US-BAYER-201030264NA

PATIENT
  Age: 22 Year
  Sex: Female
  Weight: 76 kg

DRUGS (13)
  1. YASMIN [Suspect]
     Dosage: UNK
     Route: 048
     Dates: start: 20070201, end: 20080401
  2. YASMIN [Suspect]
     Dosage: UNK
     Route: 048
     Dates: start: 20051021, end: 20060401
  3. PRENATAL VITAMINS [Concomitant]
  4. YASMIN [Suspect]
     Indication: CONTRACEPTION
     Dosage: UNK
     Route: 048
     Dates: start: 20030701, end: 20030901
  5. YASMIN [Suspect]
     Dosage: UNK
     Route: 048
     Dates: start: 20081001, end: 20081101
  6. YASMIN [Suspect]
     Dosage: UNK
     Route: 048
     Dates: start: 20030717, end: 20030924
  7. YASMIN [Suspect]
     Dosage: UNK
     Route: 048
     Dates: start: 20070226, end: 20080418
  8. YAZ [Suspect]
     Indication: CONTRACEPTION
     Dosage: UNK
     Route: 048
     Dates: start: 20090301, end: 20090501
  9. YAZ [Suspect]
     Dosage: UNK
     Route: 048
     Dates: start: 20060601, end: 20070401
  10. YASMIN [Suspect]
     Dosage: UNK
     Route: 048
     Dates: start: 20051001, end: 20060401
  11. DROSPIRENONE AND ETHINYL ESTRADIOL [Suspect]
     Indication: CONTRACEPTION
     Dosage: UNK
     Route: 048
     Dates: start: 20060608, end: 20070527
  12. YASMIN [Suspect]
     Dosage: UNK
     Route: 048
     Dates: start: 20070201, end: 20080601
  13. DROSPIRENONE AND ETHINYL ESTRADIOL [Suspect]
     Dosage: UNK
     Route: 048
     Dates: start: 20090301, end: 20090601

REACTIONS (6)
  - NAUSEA [None]
  - DEHYDRATION [None]
  - GASTROENTERITIS [None]
  - ABDOMINAL PAIN UPPER [None]
  - VOMITING [None]
  - CHOLECYSTITIS [None]
